FAERS Safety Report 4689877-2 (Version None)
Quarter: 2005Q2

REPORT INFORMATION
  Report Type: 
  Country: None (occurrence: None)
  Receive Date: 20050614
  Receipt Date: 20050603
  Transmission Date: 20051028
  Serious: Yes (Hospitalization)
  Sender: FDA-Public Use
  Company Number: US-GLAXOSMITHKLINE-A0561093A

PATIENT
  Age: 16 Year
  Sex: Male

DRUGS (1)
  1. AQUAFRESH FLUORIDE PROTECTION TOOTHPASTE TUBE [Suspect]
     Indication: DENTAL CLEANING

REACTIONS (6)
  - BLOOD PRESSURE INCREASED [None]
  - BLOOD URINE PRESENT [None]
  - GLOMERULONEPHRITIS PROLIFERATIVE [None]
  - MALAISE [None]
  - RENAL FAILURE [None]
  - VOMITING [None]
